FAERS Safety Report 22387184 (Version 1)
Quarter: 2023Q2

REPORT INFORMATION
  Report Type: Spontaneous
  Country: FR (occurrence: FR)
  Receive Date: 20230531
  Receipt Date: 20230531
  Transmission Date: 20230722
  Serious: Yes (Other)
  Sender: FDA-Public Use
  Company Number: None

PATIENT
  Age: 42 Year
  Sex: Female

DRUGS (1)
  1. CELECOXIB [Suspect]
     Active Substance: CELECOXIB
     Indication: Procedural pain
     Dosage: 400 MILLIGRAM DAILY; 1-0-1,
     Route: 065
     Dates: start: 20230504, end: 20230505

REACTIONS (1)
  - Rash vesicular [Recovered/Resolved]

NARRATIVE: CASE EVENT DATE: 20230505
